FAERS Safety Report 25931385 (Version 2)
Quarter: 2025Q4

REPORT INFORMATION
  Report Type: Spontaneous
  Country: US (occurrence: US)
  Receive Date: 20251016
  Receipt Date: 20251231
  Transmission Date: 20260117
  Serious: No
  Sender: ROCHE
  Company Number: US-ROCHE-10000411721

PATIENT
  Sex: Female

DRUGS (17)
  1. XOLAIR PFS [Suspect]
     Active Substance: OMALIZUMAB
     Indication: Atrial fibrillation
     Dosage: STRENGTH:300MG/2ML
     Route: 058
     Dates: start: 20251014
  2. XOLAIR PFS [Suspect]
     Active Substance: OMALIZUMAB
     Dosage: STRENGTH:300MG/2ML
     Route: 058
  3. DIPHENHYDRAMINE HYDROCHLORIDE [Concomitant]
     Active Substance: DIPHENHYDRAMINE HYDROCHLORIDE
     Route: 048
  4. METOPROLOL [Concomitant]
     Active Substance: METOPROLOL
     Route: 048
  5. OXYCODON HC [Concomitant]
     Route: 048
  6. PREDNISONE [Concomitant]
     Active Substance: PREDNISONE
  7. LORATADINE [Concomitant]
     Active Substance: LORATADINE
  8. LEVOTHYROXINE SODIUM [Concomitant]
     Active Substance: LEVOTHYROXINE SODIUM
  9. PANTOPRAZOLE SODIUM [Concomitant]
     Active Substance: PANTOPRAZOLE SODIUM
  10. VITAMIN D [Concomitant]
     Active Substance: VITAMIN D NOS
  11. FLUVIRIN NOS [Concomitant]
     Active Substance: INFLUENZA VIRUS VACCINE
     Dates: start: 2013, end: 2014
  12. LORAZEPAM [Concomitant]
     Active Substance: LORAZEPAM
  13. AUVI-Q [Concomitant]
     Active Substance: EPINEPHRINE
  14. CYMBALTA [Concomitant]
     Active Substance: DULOXETINE HYDROCHLORIDE
  15. METFORMIN HYDROCHLORIDE [Concomitant]
     Active Substance: METFORMIN HYDROCHLORIDE
  16. GABAPENTIN [Concomitant]
     Active Substance: GABAPENTIN
  17. HYDROXYZINE HYDROCHLORIDE [Concomitant]
     Active Substance: HYDROXYZINE HYDROCHLORIDE

REACTIONS (2)
  - Off label use [Unknown]
  - No adverse event [Unknown]
